FAERS Safety Report 21850037 (Version 2)
Quarter: 2024Q1

REPORT INFORMATION
  Report Type: Report from Study
  Country: US (occurrence: US)
  Receive Date: 20230111
  Receipt Date: 20240119
  Transmission Date: 20240410
  Serious: No
  Sender: FDA-Public Use
  Company Number: US-ABBVIE-4233348

PATIENT
  Sex: Male

DRUGS (1)
  1. SKYRIZI [Suspect]
     Active Substance: RISANKIZUMAB-RZAA
     Indication: Psoriasis
     Dosage: FREQUENCY: INJECT 1 PEN 150 MG/ML SUBCUTANEOUS EVERY 12 WEEKS
     Route: 058
     Dates: start: 20220706

REACTIONS (1)
  - Inappropriate schedule of product administration [Unknown]
